FAERS Safety Report 19007937 (Version 1)
Quarter: 2021Q1

REPORT INFORMATION
  Report Type: Other
  Country: US (occurrence: US)
  Receive Date: 20210315
  Receipt Date: 20210315
  Transmission Date: 20210420
  Serious: Yes (Hospitalization)
  Sender: FDA-Public Use
  Company Number: US-ROCHE-2783280

PATIENT
  Sex: Female

DRUGS (1)
  1. OCREVUS [Suspect]
     Active Substance: OCRELIZUMAB
     Indication: RELAPSING MULTIPLE SCLEROSIS
     Dosage: DATE OF TREATMENT: 24/FEB/2020, 10/AUG/2020, 15/FEB/2021
     Route: 065
     Dates: start: 20200210

REACTIONS (2)
  - Cellulitis [Not Recovered/Not Resolved]
  - Pain [Not Recovered/Not Resolved]
